FAERS Safety Report 15016472 (Version 2)
Quarter: 2018Q2

REPORT INFORMATION
  Report Type: Spontaneous
  Country: FR (occurrence: FR)
  Receive Date: 20180615
  Receipt Date: 20180628
  Transmission Date: 20180711
  Serious: Yes (Death, Hospitalization, Other)
  Sender: FDA-Public Use
  Company Number: FR-PFIZER INC-2018242995

PATIENT
  Age: 62 Year
  Sex: Female
  Weight: 40 kg

DRUGS (4)
  1. PROGRAF [Suspect]
     Active Substance: TACROLIMUS\TACROLIMUS ANHYDROUS
     Indication: PROPHYLAXIS AGAINST TRANSPLANT REJECTION
     Dosage: 10 MG, 1X/DAY
     Route: 048
     Dates: start: 20130529, end: 20130630
  2. SOLU-MEDROL [Suspect]
     Active Substance: METHYLPREDNISOLONE SODIUM SUCCINATE
     Indication: PROPHYLAXIS AGAINST TRANSPLANT REJECTION
     Dosage: 20 MG, 1X/DAY
     Route: 041
     Dates: start: 20130529, end: 20130630
  3. CELLCEPT [Suspect]
     Active Substance: MYCOPHENOLATE MOFETIL\MYCOPHENOLATE MOFETIL HYDROCHLORIDE
     Indication: PROPHYLAXIS AGAINST TRANSPLANT REJECTION
     Dosage: 2 G, 1X/DAY
     Route: 048
     Dates: start: 20130529, end: 20130614
  4. PREDNISOLONE. [Suspect]
     Active Substance: PREDNISOLONE
     Indication: LIVER TRANSPLANT
     Dosage: UNK

REACTIONS (17)
  - Multiple organ dysfunction syndrome [Fatal]
  - Circulatory collapse [Unknown]
  - Respiratory failure [Unknown]
  - Aspergillus infection [Unknown]
  - Systemic inflammatory response syndrome [Unknown]
  - Respiratory acidosis [Unknown]
  - Hypercapnia [Unknown]
  - Cytomegalovirus infection [Unknown]
  - Lung disorder [Unknown]
  - Hypoxia [Unknown]
  - Pulmonary oedema [Unknown]
  - Acute respiratory distress syndrome [Fatal]
  - Toxoplasmosis [Fatal]
  - Renal failure [Unknown]
  - Coagulopathy [Unknown]
  - Product use in unapproved indication [Unknown]
  - Metabolic disorder [Unknown]

NARRATIVE: CASE EVENT DATE: 201306
